FAERS Safety Report 6535572-4 (Version None)
Quarter: 2010Q1

REPORT INFORMATION
  Report Type: 
  Country: None (occurrence: None)
  Receive Date: 20100113
  Receipt Date: 20100105
  Transmission Date: 20100710
  Serious: Yes (Other)
  Sender: FDA-Public Use
  Company Number: US-BAYER-200943387NA

PATIENT
  Age: 63 Year
  Sex: Male

DRUGS (5)
  1. NEXAVAR [Suspect]
     Indication: HEPATIC NEOPLASM MALIGNANT
     Dosage: TOTAL DAILY DOSE: 200 MG  UNIT DOSE: 200 MG
     Route: 048
  2. NEXAVAR [Suspect]
     Dosage: GRADUALLY INCREASED THE DOSEGE
     Route: 048
  3. TARCEVA [Concomitant]
  4. AVASTIN [Concomitant]
  5. MEDICATIONS FOR DIABETES [Concomitant]

REACTIONS (2)
  - PULMONARY EMBOLISM [None]
  - WEIGHT DECREASED [None]
